FAERS Safety Report 13752643 (Version 2)
Quarter: 2017Q4

REPORT INFORMATION
  Report Type: Report from Study
  Country: US (occurrence: US)
  Receive Date: 20170713
  Receipt Date: 20171023
  Transmission Date: 20180320
  Serious: Yes (Hospitalization, Disabling, Other)
  Sender: FDA-Public Use
  Company Number: US-ACTELION-A-NJ2017-155550

PATIENT
  Age: 77 Year
  Sex: Female

DRUGS (5)
  1. ADEMPAS [Concomitant]
     Active Substance: RIOCIGUAT
  2. METOLAZONE. [Concomitant]
     Active Substance: METOLAZONE
  3. OPSUMIT [Suspect]
     Active Substance: MACITENTAN
     Indication: PULMONARY ARTERIAL HYPERTENSION
     Dosage: 10 MG, QD
     Route: 048
     Dates: start: 20170420, end: 20170622
  4. BUMEX [Concomitant]
     Active Substance: BUMETANIDE
  5. FUROSEMIDE. [Concomitant]
     Active Substance: FUROSEMIDE

REACTIONS (5)
  - Renal failure [Unknown]
  - Generalised oedema [Recovered/Resolved]
  - Fluid retention [Unknown]
  - Acute kidney injury [Recovered/Resolved]
  - Pulmonary oedema [Recovered/Resolved]
